FAERS Safety Report 16347376 (Version 2)
Quarter: 2019Q2

REPORT INFORMATION
  Report Type: Spontaneous
  Country: SG (occurrence: SG)
  Receive Date: 20190523
  Receipt Date: 20190605
  Transmission Date: 20190711
  Serious: Yes (Other)
  Sender: FDA-Public Use
  Company Number: SG-REGENERON PHARMACEUTICALS, INC.-2019-33068

PATIENT

DRUGS (2)
  1. EYLEA [Suspect]
     Active Substance: AFLIBERCEPT
     Dosage: UNKNOWN SITE, DOSE, FREQUENCY AND TOTAL NUMBER OF INJECTIONS
     Route: 031
  2. EYLEA [Suspect]
     Active Substance: AFLIBERCEPT
     Indication: NEOVASCULAR AGE-RELATED MACULAR DEGENERATION
     Dosage: UNKNOWN SITE, DOSE, FREQUENCY AND TOTAL NUMBER OF INJECTIONS
     Route: 031

REACTIONS (1)
  - Retinal thickening [Unknown]
